FAERS Safety Report 5670167-6 (Version None)
Quarter: 2008Q1

REPORT INFORMATION
  Report Type: 
  Country: None (occurrence: None)
  Receive Date: 20080312
  Receipt Date: 20080225
  Transmission Date: 20080703
  Serious: Yes (Hospitalization)
  Sender: FDA-Public Use
  Company Number: 2007BI016445

PATIENT
  Age: 33 Year
  Sex: Female

DRUGS (2)
  1. AVONEX [Suspect]
     Indication: MULTIPLE SCLEROSIS
     Dosage: 1 UNK;QW;IM
     Route: 030
     Dates: start: 20040301, end: 20070401
  2. MULTI-VITAMINS [Concomitant]

REACTIONS (10)
  - CAESAREAN SECTION [None]
  - DRUG EXPOSURE DURING PREGNANCY [None]
  - HYPERTENSION [None]
  - LABYRINTHITIS [None]
  - OPERATIVE HAEMORRHAGE [None]
  - POSTPARTUM DISORDER [None]
  - PREGNANCY [None]
  - PROCEDURAL COMPLICATION [None]
  - TACHYCARDIA [None]
  - UTERINE RUPTURE [None]
